FAERS Safety Report 9194088 (Version 5)
Quarter: 2014Q1

REPORT INFORMATION
  Report Type: Report from Study
  Country: US (occurrence: US)
  Receive Date: 20130327
  Receipt Date: 20140120
  Transmission Date: 20141002
  Serious: Yes (Hospitalization, Other)
  Sender: FDA-Public Use
  Company Number: US-ELI_LILLY_AND_COMPANY-US201207006745

PATIENT
  Age: 76 Year
  Sex: Female

DRUGS (10)
  1. TERIPARATIDE [Suspect]
     Indication: OSTEOPOROSIS
     Dosage: 20 UG, QD
     Route: 065
     Dates: start: 20120718
  2. TERIPARATIDE [Suspect]
     Dosage: 20 UG, QD
     Route: 065
  3. TERIPARATIDE [Suspect]
     Dosage: 20 UG, QD
     Route: 065
     Dates: start: 20121127
  4. TERIPARATIDE [Suspect]
     Dosage: 20 UG, QD
     Route: 065
     Dates: start: 20121127
  5. TERIPARATIDE [Suspect]
     Dosage: 20 UG, QD
     Route: 065
     Dates: start: 20120718
  6. CALCIUM +VIT D [Concomitant]
     Indication: PRODUCT USED FOR UNKNOWN INDICATION
  7. ATORVASTATIN [Concomitant]
     Indication: PRODUCT USED FOR UNKNOWN INDICATION
     Dosage: 20 MG, UNK
     Route: 065
  8. METOPROLOL [Concomitant]
     Indication: PRODUCT USED FOR UNKNOWN INDICATION
     Dosage: 25 MG, UNK
     Route: 065
  9. WARFARIN [Concomitant]
     Indication: THROMBOSIS PROPHYLAXIS
     Dosage: 5 MG, UNK
     Route: 065
  10. TRAMADOL [Concomitant]
     Indication: BACK PAIN
     Dosage: UNK, PRN
     Route: 065

REACTIONS (7)
  - Mitral valve incompetence [Not Recovered/Not Resolved]
  - Speech disorder [Unknown]
  - Fatigue [Unknown]
  - Abdominal discomfort [Unknown]
  - Vitamin D decreased [Unknown]
  - Injection site pain [Unknown]
  - Photopsia [Unknown]
